FAERS Safety Report 17847241 (Version 1)
Quarter: 2020Q2

REPORT INFORMATION
  Report Type: Spontaneous
  Country: IT (occurrence: IT)
  Receive Date: 20200601
  Receipt Date: 20200601
  Transmission Date: 20200714
  Serious: Yes (Hospitalization)
  Sender: FDA-Public Use
  Company Number: NVSC2020IT149760

PATIENT
  Age: 73 Year
  Sex: Female
  Weight: 75 kg

DRUGS (11)
  1. NEXIUM [Concomitant]
     Active Substance: ESOMEPRAZOLE MAGNESIUM
     Indication: METAPLASTIC BREAST CARCINOMA
     Dosage: 20 MG, QD
     Route: 065
  2. LYRICA [Concomitant]
     Active Substance: PREGABALIN
     Indication: METAPLASTIC BREAST CARCINOMA
     Dosage: 75 MG, QD
     Route: 065
  3. EUTIROX [Concomitant]
     Active Substance: LEVOTHYROXINE SODIUM
     Dosage: 50 UG, QW
     Route: 065
  4. DIBASE [Concomitant]
     Active Substance: CHOLECALCIFEROL
     Indication: METAPLASTIC BREAST CARCINOMA
     Dosage: 25000 KIU, CYCLIC
     Route: 065
  5. DUROGESIC [Concomitant]
     Active Substance: FENTANYL
     Indication: METAPLASTIC BREAST CARCINOMA
     Dosage: UNK
     Route: 065
  6. KISQALI [Suspect]
     Active Substance: RIBOCICLIB
     Indication: METAPLASTIC BREAST CARCINOMA
     Dosage: 600 MG, CYCLIC
     Route: 065
     Dates: start: 20200217, end: 20200302
  7. METOPROLOLO [Concomitant]
     Indication: METAPLASTIC BREAST CARCINOMA
     Dosage: 50 MG, QD
     Route: 065
  8. EUTIROX [Concomitant]
     Active Substance: LEVOTHYROXINE SODIUM
     Indication: METAPLASTIC BREAST CARCINOMA
     Dosage: 75 UG, QD
     Route: 065
  9. TAVOR [Concomitant]
     Indication: METAPLASTIC BREAST CARCINOMA
     Dosage: 1 MG, QD
     Route: 065
  10. XGEVA [Concomitant]
     Active Substance: DENOSUMAB
     Indication: METAPLASTIC BREAST CARCINOMA
     Dosage: 120 MG
     Route: 065
  11. TONACAL D3 [Concomitant]
     Indication: PRODUCT USED FOR UNKNOWN INDICATION
     Dosage: 1 DF, QD
     Route: 065

REACTIONS (4)
  - Gamma-glutamyltransferase increased [Not Recovered/Not Resolved]
  - Blood lactate dehydrogenase increased [Not Recovered/Not Resolved]
  - Aspartate aminotransferase increased [Not Recovered/Not Resolved]
  - Alanine aminotransferase increased [Not Recovered/Not Resolved]

NARRATIVE: CASE EVENT DATE: 20200318
